FAERS Safety Report 19437902 (Version 2)
Quarter: 2021Q3

REPORT INFORMATION
  Report Type: Other
  Country: US (occurrence: US)
  Receive Date: 20210619
  Receipt Date: 20210715
  Transmission Date: 20211014
  Serious: Yes (Other)
  Sender: FDA-Public Use
  Company Number: US-ROCHE-2852016

PATIENT
  Sex: Male

DRUGS (10)
  1. XARELTO [Concomitant]
     Active Substance: RIVAROXABAN
  2. VITAMIN B12 [Concomitant]
     Active Substance: CYANOCOBALAMIN
  3. ATORVASTATIN [Concomitant]
     Active Substance: ATORVASTATIN
  4. XELODA [Suspect]
     Active Substance: CAPECITABINE
     Indication: COLORECTAL CANCER METASTATIC
     Dosage: TAKE 4 TABLET BY MOUTH TWICE A DAY ON DAYS 1?14
     Route: 048
  5. LEVEMIR [Concomitant]
     Active Substance: INSULIN DETEMIR
  6. VASCEPA [Concomitant]
     Active Substance: ICOSAPENT ETHYL
  7. VITAMIN C [Concomitant]
     Active Substance: ASCORBIC ACID
  8. METOPROLOL. [Concomitant]
     Active Substance: METOPROLOL
  9. XELODA [Suspect]
     Active Substance: CAPECITABINE
     Indication: COLON CANCER
  10. LOSARTAN. [Concomitant]
     Active Substance: LOSARTAN

REACTIONS (2)
  - Blindness [Unknown]
  - Cerebral palsy [Unknown]
